FAERS Safety Report 8199208-1 (Version None)
Quarter: 2012Q1

REPORT INFORMATION
  Report Type: 
  Country: None (occurrence: None)
  Receive Date: 20120309
  Receipt Date: 20120302
  Transmission Date: 20120608
  Serious: Yes (Other)
  Sender: FDA-Public Use
  Company Number: US-JNJFOC-20120301378

PATIENT
  Sex: Female
  Weight: 110.22 kg

DRUGS (1)
  1. SIMPONI [Suspect]
     Indication: RHEUMATOID ARTHRITIS
     Route: 058
     Dates: start: 20090101

REACTIONS (5)
  - DRUG DOSE OMISSION [None]
  - DEVICE MALFUNCTION [None]
  - GLUCOSE TOLERANCE IMPAIRED [None]
  - INFLUENZA [None]
  - SINUSITIS [None]
